FAERS Safety Report 10006025 (Version 1)
Quarter: 2014Q1

REPORT INFORMATION
  Report Type: Spontaneous
  Country: US (occurrence: US)
  Receive Date: 20140313
  Receipt Date: 20140313
  Transmission Date: 20141002
  Serious: Yes (Other)
  Sender: FDA-Public Use
  Company Number: US-MYLANLABS-2014S1005071

PATIENT
  Sex: Female

DRUGS (6)
  1. BUDESONIDE CAPSULES [Suspect]
     Indication: MASTOCYTOSIS
     Dosage: BETWEEN 7AM AND 9AM
     Dates: start: 2012, end: 2013
  2. BUDESONIDE CAPSULES [Suspect]
     Indication: OFF LABEL USE
     Dosage: BETWEEN 7AM AND 9AM
     Dates: start: 2012, end: 2013
  3. RANITIDINE [Concomitant]
     Indication: MASTOCYTOSIS
  4. KETOTIFEN [Concomitant]
     Indication: MASTOCYTOSIS
  5. URSODIOL [Concomitant]
     Indication: MASTOCYTOSIS
  6. ZYRTEC [Concomitant]

REACTIONS (1)
  - Rectal haemorrhage [Recovered/Resolved]
